FAERS Safety Report 13082761 (Version 1)
Quarter: 2017Q1

REPORT INFORMATION
  Report Type: Report from Study
  Country: US (occurrence: US)
  Receive Date: 20170103
  Receipt Date: 20170103
  Transmission Date: 20170428
  Serious: Yes (Hospitalization, Other)
  Sender: FDA-Public Use
  Company Number: US-MALLINCKRODT-T201606909

PATIENT
  Age: 51 Year
  Sex: Female
  Weight: 104 kg

DRUGS (23)
  1. KENALOG [Concomitant]
     Active Substance: TRIAMCINOLONE ACETONIDE
     Indication: PRODUCT USED FOR UNKNOWN INDICATION
     Dosage: 0.1%, APPLY TO SCALP DAILY
     Route: 061
  2. PRED FORTE [Concomitant]
     Active Substance: PREDNISOLONE ACETATE
     Indication: PRODUCT USED FOR UNKNOWN INDICATION
     Dosage: 1%, PLACE 1 DROP INTO EYE BID
     Route: 047
  3. GLUCOPHAGE [Concomitant]
     Active Substance: METFORMIN HYDROCHLORIDE
     Indication: PRODUCT USED FOR UNKNOWN INDICATION
     Dosage: 1000 MG TABLET, 1 TABLET BID WITH MEALS
     Route: 048
  4. DELTASONE [Concomitant]
     Active Substance: PREDNISONE
     Dosage: 5 MG TABLET, 1 TABLET DAILY
     Route: 048
  5. H.P. ACTHAR [Suspect]
     Active Substance: CORTICOTROPIN
     Indication: NEUROSARCOIDOSIS
     Dosage: 80 IU, THREE TIMES/WEEK
     Route: 058
     Dates: start: 20160908
  6. COGENTIN [Concomitant]
     Active Substance: BENZTROPINE MESYLATE
     Indication: PRODUCT USED FOR UNKNOWN INDICATION
     Dosage: 0.5 MG TABLET, 1 TABLET BID FOR 30 DAYS
     Route: 048
  7. HALDOL [Concomitant]
     Active Substance: HALOPERIDOL
     Indication: PRODUCT USED FOR UNKNOWN INDICATION
     Dosage: 20 MG TABLET, 1 TABLET EVERY EVENING FOR 30 DAYS
     Route: 048
  8. DELTASONE [Concomitant]
     Active Substance: PREDNISONE
     Indication: PRODUCT USED FOR UNKNOWN INDICATION
     Dosage: 5 MG TABLET, 1 TABLET EVERY OTHER DAY
  9. WELLBUTRIN [Concomitant]
     Active Substance: BUPROPION HYDROCHLORIDE
     Indication: PRODUCT USED FOR UNKNOWN INDICATION
     Dosage: 150 MG TABLET, 1 TABLET BID
     Route: 048
  10. DEPAKOTE [Concomitant]
     Active Substance: DIVALPROEX SODIUM
     Indication: PRODUCT USED FOR UNKNOWN INDICATION
     Dosage: ER 500 MG TABLET, 3 TABLETS EVERY EVENING FOR 30 DAYS
     Route: 048
  11. COSOPT [Concomitant]
     Active Substance: DORZOLAMIDE HYDROCHLORIDE\TIMOLOL MALEATE
     Indication: PRODUCT USED FOR UNKNOWN INDICATION
     Dosage: 22.3-6.8 MG/ML SOLUTION, 1 DROP INTO BOTH EYES BID
     Route: 047
  12. SYNALAR [Concomitant]
     Active Substance: FLUOCINOLONE ACETONIDE
     Indication: PRODUCT USED FOR UNKNOWN INDICATION
     Dosage: 0.025% OINT
     Route: 061
  13. KLONOPIN [Concomitant]
     Active Substance: CLONAZEPAM
     Indication: PRODUCT USED FOR UNKNOWN INDICATION
     Dosage: 0.5 MG TABLET, 1-2 TABLETS AT NIGHT
  14. NEURONTIN [Concomitant]
     Active Substance: GABAPENTIN
     Indication: PRODUCT USED FOR UNKNOWN INDICATION
     Dosage: 100 MG CAPSULE, 2 CAPSULES TID
     Route: 048
  15. HYDRODIURIL [Concomitant]
     Active Substance: HYDROCHLOROTHIAZIDE
     Indication: PRODUCT USED FOR UNKNOWN INDICATION
     Dosage: 25 MG TABLET, 1 TABLET DAILY
     Route: 048
  16. LIPITOR [Concomitant]
     Active Substance: ATORVASTATIN CALCIUM
     Indication: PRODUCT USED FOR UNKNOWN INDICATION
     Dosage: 20 MG TABLET, ONE AT NIGHT
     Route: 048
  17. KLONOPIN [Concomitant]
     Active Substance: CLONAZEPAM
     Dosage: 0.5 MG TABLET, ONE TABLET AT BEDTIME, INCREASE TO TWO TABLET FOR FIVE DAYS
     Route: 048
  18. LISINOPRIL. [Concomitant]
     Active Substance: LISINOPRIL
     Indication: PRODUCT USED FOR UNKNOWN INDICATION
     Dosage: 40 MG TABLET, 1 TABLET DAILY
     Route: 048
  19. TOPROL XL [Concomitant]
     Active Substance: METOPROLOL SUCCINATE
     Indication: PRODUCT USED FOR UNKNOWN INDICATION
     Dosage: XL 100 MG TABLET, 1 TABLET DAILY
     Route: 048
  20. IRON [Concomitant]
     Active Substance: IRON
     Indication: PRODUCT USED FOR UNKNOWN INDICATION
     Dosage: DAILY
     Route: 048
  21. IMURAN [Concomitant]
     Active Substance: AZATHIOPRINE
     Indication: PRODUCT USED FOR UNKNOWN INDICATION
     Dosage: 50 MG TABLET, 2 TABLETS BID
     Route: 048
  22. HALDOL [Concomitant]
     Active Substance: HALOPERIDOL
     Dosage: 20 MG TABLET, 1 TABLET DAILY
     Route: 048
  23. ASPIRIN. [Concomitant]
     Active Substance: ASPIRIN
     Indication: PRODUCT USED FOR UNKNOWN INDICATION
     Dosage: 81 MG TABLET, ONE DAILY
     Route: 048

REACTIONS (7)
  - Hemiparesis [Recovered/Resolved]
  - Vision blurred [Recovered/Resolved]
  - Hypertension [Recovered/Resolved]
  - Dizziness [Recovered/Resolved]
  - Peripheral swelling [Recovered/Resolved]
  - Pollakiuria [Recovered/Resolved]
  - Gait disturbance [Recovered/Resolved]

NARRATIVE: CASE EVENT DATE: 201612
